FAERS Safety Report 8888043 (Version 1)
Quarter: 2012Q4

REPORT INFORMATION
  Report Type: 
  Country: US (occurrence: US)
  Receive Date: 20121106
  Receipt Date: 20121106
  Transmission Date: 20130627
  Serious: No
  Sender: FDA-Public Use
  Company Number: US-BIOGENIDEC-2012BI043460

PATIENT
  Sex: Female

DRUGS (2)
  1. AVONEX [Suspect]
     Indication: MULTIPLE SCLEROSIS
     Route: 030
     Dates: start: 20120503, end: 20120620
  2. AVONEX [Suspect]
     Indication: MULTIPLE SCLEROSIS
     Route: 030

REACTIONS (10)
  - Toothache [Not Recovered/Not Resolved]
  - Gingival swelling [Recovered/Resolved]
  - Gingival bleeding [Not Recovered/Not Resolved]
  - Pollakiuria [Recovered/Resolved]
  - Oral pain [Recovered/Resolved]
  - Hemiparesis [Not Recovered/Not Resolved]
  - Tooth extraction [Recovered/Resolved]
  - Gait disturbance [Not Recovered/Not Resolved]
  - Muscle spasms [Recovered/Resolved]
  - Headache [Recovered/Resolved]
